FAERS Safety Report 5419305-0 (Version None)
Quarter: 2007Q3

REPORT INFORMATION
  Report Type: 
  Country: None (occurrence: None)
  Receive Date: 20070820
  Receipt Date: 20070626
  Transmission Date: 20080115
  Serious: Yes (Other)
  Sender: FDA-Public Use
  Company Number: US-PURDUE-USA_2007_0028162

PATIENT
  Sex: Male
  Weight: 79 kg

DRUGS (1)
  1. OXYCONTIN [Suspect]
     Indication: NECK PAIN
     Dosage: 20 MG, SEE TEXT
     Dates: start: 20010501, end: 20060401

REACTIONS (10)
  - DIZZINESS [None]
  - DRUG WITHDRAWAL SYNDROME [None]
  - INSOMNIA [None]
  - LOSS OF CONSCIOUSNESS [None]
  - MALAISE [None]
  - MENTAL DISORDER [None]
  - NAUSEA [None]
  - ROAD TRAFFIC ACCIDENT [None]
  - SOMNOLENCE [None]
  - STERNAL FRACTURE [None]
